FAERS Safety Report 4328890-1 (Version None)
Quarter: 2004Q1

REPORT INFORMATION
  Report Type: 
  Country: None (occurrence: None)
  Receive Date: 20040331
  Receipt Date: 20040316
  Transmission Date: 20041129
  Serious: Yes (Life-Threatening, Hospitalization, Other)
  Sender: FDA-Public Use
  Company Number: 2004S1000219

PATIENT
  Age: 67 Year
  Sex: Male
  Weight: 92.9874 kg

DRUGS (2)
  1. NITROGLYCERIN [Suspect]
     Indication: ANGINA PECTORIS
     Dosage: 0.4MG/HR Q 12 HRS, TRANSDERMAL
     Route: 062
     Dates: start: 20031101
  2. CHLORDIAZEPOXIDE [Concomitant]

REACTIONS (5)
  - ANGINA PECTORIS [None]
  - APPLICATION SITE ERYTHEMA [None]
  - MEDICATION ERROR [None]
  - MYOCARDIAL INFARCTION [None]
  - PHARMACEUTICAL PRODUCT COMPLAINT [None]
